FAERS Safety Report 15494760 (Version 3)
Quarter: 2018Q4

REPORT INFORMATION
  Report Type: Spontaneous
  Country: JP (occurrence: JP)
  Receive Date: 20181012
  Receipt Date: 20181106
  Transmission Date: 20190205
  Serious: Yes (Other)
  Sender: FDA-Public Use
  Company Number: PHJP2018JP017642

PATIENT
  Age: 64 Year
  Sex: Female

DRUGS (7)
  1. GLIVEC [Interacting]
     Active Substance: IMATINIB MESYLATE
     Dosage: UNK
     Route: 048
  2. GLIVEC [Interacting]
     Active Substance: IMATINIB MESYLATE
     Dosage: 300 MG, UNK
     Route: 048
  3. GLIVEC [Suspect]
     Active Substance: IMATINIB MESYLATE
     Indication: CHRONIC MYELOID LEUKAEMIA
     Dosage: 400 MG, UNK
     Route: 048
  4. AFINITOR [Interacting]
     Active Substance: EVEROLIMUS
     Dosage: 5 MG, UNK
     Route: 048
  5. AFINITOR [Interacting]
     Active Substance: EVEROLIMUS
     Dosage: 5 MG, UNK
     Route: 048
  6. GLIVEC [Interacting]
     Active Substance: IMATINIB MESYLATE
     Dosage: 300 MG, UNK
     Route: 048
  7. AFINITOR [Interacting]
     Active Substance: EVEROLIMUS
     Indication: PANCREATIC NEUROENDOCRINE TUMOUR
     Dosage: 10 MG, UNK
     Route: 048

REACTIONS (17)
  - Pancreatic neuroendocrine tumour [Not Recovered/Not Resolved]
  - Hepatic neoplasm [Unknown]
  - Drug interaction [Unknown]
  - Stomatitis [Recovered/Resolved]
  - Red blood cell count decreased [Recovered/Resolved]
  - Drug level increased [Unknown]
  - Oedema peripheral [Recovered/Resolved]
  - White blood cell count decreased [Recovered/Resolved]
  - Malignant neoplasm progression [Unknown]
  - Pulmonary embolism [Recovered/Resolved]
  - Pancytopenia [Recovered/Resolved]
  - Second primary malignancy [Not Recovered/Not Resolved]
  - Chest pain [Recovered/Resolved]
  - Rash [Recovered/Resolved]
  - Chronic myeloid leukaemia recurrent [Unknown]
  - Metastases to liver [Unknown]
  - Platelet count decreased [Recovered/Resolved]
